FAERS Safety Report 20653878 (Version 1)
Quarter: 2022Q1

REPORT INFORMATION
  Report Type: Report from Study
  Country: US (occurrence: US)
  Receive Date: 20220330
  Receipt Date: 20220330
  Transmission Date: 20220423
  Serious: Yes (Other)
  Sender: FDA-Public Use
  Company Number: US-BAYER-2022A044162

PATIENT
  Age: 72 Year
  Sex: Female
  Weight: 73.923 kg

DRUGS (2)
  1. ADEMPAS [Suspect]
     Active Substance: RIOCIGUAT
     Indication: Pulmonary arterial hypertension
     Dosage: UNK
     Dates: start: 20210914
  2. ADEMPAS [Suspect]
     Active Substance: RIOCIGUAT
     Indication: Pulmonary arterial hypertension
     Dosage: 2 MG, TID
     Route: 048

REACTIONS (4)
  - Dialysis hypotension [None]
  - Hypotension [None]
  - Paraesthesia oral [None]
  - Hypoaesthesia oral [None]

NARRATIVE: CASE EVENT DATE: 20220101
